FAERS Safety Report 7413639-6 (Version None)
Quarter: 2011Q2

REPORT INFORMATION
  Report Type: 
  Country: None (occurrence: None)
  Receive Date: 20110413
  Receipt Date: 20110331
  Transmission Date: 20111010
  Serious: Yes (Death)
  Sender: FDA-Public Use
  Company Number: JP-BAYER-2011-022209

PATIENT
  Sex: Female
  Weight: 42 kg

DRUGS (8)
  1. PLAVIX [Suspect]
     Dosage: DAILY DOSE 25 MG
     Route: 048
     Dates: start: 20101220, end: 20101230
  2. PLETAL [Suspect]
     Dosage: DAILY DOSE 150 MG
     Route: 048
     Dates: start: 20101231, end: 20110121
  3. OMEPRAL [Concomitant]
     Route: 065
  4. CELECTOL [Concomitant]
     Route: 048
  5. ASPIRIN [Suspect]
     Indication: ISCHAEMIC HEART DISEASE PROPHYLAXIS
     Dosage: DAILY DOSE 100 MG
     Route: 048
     Dates: start: 20101222
  6. CRESTOR [Concomitant]
     Route: 048
  7. ALFAROL [Suspect]
     Route: 048
  8. PLAVIX [Suspect]
     Dosage: DAILY DOSE 25 MG
     Route: 048
     Dates: start: 20110122, end: 20110301

REACTIONS (1)
  - INTERSTITIAL LUNG DISEASE [None]
